FAERS Safety Report 21778158 (Version 2)
Quarter: 2023Q1

REPORT INFORMATION
  Report Type: Report from Study
  Country: US (occurrence: US)
  Receive Date: 20221226
  Receipt Date: 20230117
  Transmission Date: 20230418
  Serious: Yes (Other)
  Sender: FDA-Public Use
  Company Number: US-CLOVIS ONCOLOGY-CLO-2022-001205

PATIENT
  Age: 64 Year
  Sex: Female

DRUGS (4)
  1. RUBRACA [Suspect]
     Active Substance: RUCAPARIB CAMSYLATE
     Indication: Ovarian cancer metastatic
     Dosage: 300 MILLIGRAM, BID
     Route: 048
     Dates: start: 20221028, end: 20221028
  2. RUBRACA [Suspect]
     Active Substance: RUCAPARIB CAMSYLATE
     Indication: Ovarian cancer
     Dosage: 600 MILLIGRAM, BID
     Dates: start: 202210
  3. RUBRACA [Suspect]
     Active Substance: RUCAPARIB CAMSYLATE
     Indication: Ovarian cancer
     Dosage: 600 MILLIGRAM, BID
     Dates: start: 20221028
  4. RUBRACA [Suspect]
     Active Substance: RUCAPARIB CAMSYLATE
     Indication: Fallopian tube cancer

REACTIONS (14)
  - Neuropathy peripheral [Recovering/Resolving]
  - Dark circles under eyes [Unknown]
  - Amnesia [Not Recovered/Not Resolved]
  - Dysphemia [Not Recovered/Not Resolved]
  - Vertigo positional [Unknown]
  - Gait disturbance [Unknown]
  - Peripheral coldness [Unknown]
  - Foot deformity [Unknown]
  - Periorbital swelling [Unknown]
  - Abdominal distension [Unknown]
  - Decreased appetite [Unknown]
  - Fatigue [Not Recovered/Not Resolved]
  - Product dose omission issue [Unknown]
  - Accidental underdose [Unknown]

NARRATIVE: CASE EVENT DATE: 20221028
